FAERS Safety Report 6720463-6 (Version None)
Quarter: 2010Q2

REPORT INFORMATION
  Report Type: 
  Country: None (occurrence: None)
  Receive Date: 20100511
  Receipt Date: 20100317
  Transmission Date: 20101027
  Serious: Yes (Death, Hospitalization, Other)
  Sender: FDA-Public Use
  Company Number: AU-GENENTECH-287598

PATIENT
  Sex: Female
  Weight: 91.5 kg

DRUGS (17)
  1. BLINDED BEVACIZUMAB [Suspect]
     Dosage: UNK MG, Q21D
     Route: 042
     Dates: start: 20090427, end: 20090714
  2. CYCLOPHOSPHAMIDE [Suspect]
     Dosage: UNK MG, Q21D
     Route: 042
     Dates: start: 20090427, end: 20090714
  3. DOXORUBICIN HCL [Suspect]
     Dosage: UNK MG, Q21D
     Route: 042
     Dates: start: 20090427, end: 20090714
  4. BLINDED PLACEBO [Suspect]
     Dosage: UNK MG, Q21D
     Route: 042
     Dates: start: 20090427, end: 20090714
  5. BLINDED PREDNISONE [Suspect]
     Dosage: UNK MG, Q21D
     Route: 042
     Dates: start: 20090427, end: 20090714
  6. BLINDED RITUXIMAB [Suspect]
     Dosage: UNK MG, Q21D
     Route: 042
     Dates: start: 20090427, end: 20090714
  7. VINCRISTINE [Suspect]
     Dosage: UNK MG, Q21D
     Route: 042
     Dates: start: 20090427, end: 20090714
  8. RITUXAN [Suspect]
     Indication: B-CELL LYMPHOMA
     Dosage: 750 MG, Q21D
     Route: 042
     Dates: start: 20090428, end: 20090714
  9. CYCLOPHOSPHAMIDE [Suspect]
     Indication: B-CELL LYMPHOMA
     Dosage: 1500 MG, Q21D
     Route: 042
     Dates: start: 20090428, end: 20090714
  10. DOXORUBICIN HCL [Suspect]
     Indication: B-CELL LYMPHOMA
     Dosage: 100 MG, Q21D
     Route: 042
     Dates: start: 20090428, end: 20090714
  11. VINCRISTINE [Suspect]
     Indication: B-CELL LYMPHOMA
     Dosage: 2 MG, Q21D
     Route: 042
     Dates: start: 20090428, end: 20090714
  12. PREDNISOLON [Suspect]
     Indication: B-CELL LYMPHOMA
     Dosage: 100 MG, UNK
     Route: 048
     Dates: start: 20090428, end: 20090714
  13. CHOLECALCIFEROL [Concomitant]
     Indication: DRUG USE FOR UNKNOWN INDICATION
     Dosage: UNK
  14. PANADOL [Concomitant]
     Indication: DRUG USE FOR UNKNOWN INDICATION
     Dosage: UNK
  15. PREDNISOLON [Concomitant]
     Indication: DRUG USE FOR UNKNOWN INDICATION
     Dosage: UNK
  16. FLUCONAZOLE [Concomitant]
     Indication: DRUG USE FOR UNKNOWN INDICATION
     Dosage: UNK
     Dates: start: 20090501
  17. FAMVIR [Concomitant]
     Indication: DRUG USE FOR UNKNOWN INDICATION
     Dosage: UNK
     Dates: start: 20090501

REACTIONS (2)
  - CONGESTIVE CARDIOMYOPATHY [None]
  - INVESTIGATION [None]
